FAERS Safety Report 20119520 (Version 4)
Quarter: 2022Q1

REPORT INFORMATION
  Report Type: Report from Study
  Country: BR (occurrence: BR)
  Receive Date: 20211126
  Receipt Date: 20220331
  Transmission Date: 20220423
  Serious: Yes (Hospitalization, Other)
  Sender: FDA-Public Use
  Company Number: BR-NOVARTISPH-NVSC2021BR269651

PATIENT
  Age: 61 Year
  Sex: Female
  Weight: 83 kg

DRUGS (9)
  1. EVEROLIMUS [Suspect]
     Active Substance: EVEROLIMUS
     Indication: Breast cancer metastatic
     Dosage: 10 MG, QD
     Route: 065
     Dates: start: 20210409
  2. EVEROLIMUS [Suspect]
     Active Substance: EVEROLIMUS
     Dosage: 10 MG, QD
     Route: 065
  3. PALBOCICLIB [Concomitant]
     Active Substance: PALBOCICLIB
     Indication: Product used for unknown indication
     Dosage: 125 MG, QD  (EVERY 28 DAYS)
     Route: 065
  4. EXEMESTANE [Concomitant]
     Active Substance: EXEMESTANE
     Indication: Breast cancer
     Dosage: 25 MG, QD
     Route: 065
     Dates: start: 20210409
  5. EXEMESTANE [Concomitant]
     Active Substance: EXEMESTANE
     Dosage: 25 MG, QD
     Route: 065
  6. SERTRALINE [Concomitant]
     Active Substance: SERTRALINE HYDROCHLORIDE
     Indication: Depression
     Dosage: 50 MG, QD
     Route: 048
  7. SERTRALINE [Concomitant]
     Active Substance: SERTRALINE HYDROCHLORIDE
     Indication: Anxiety
  8. ALPRAZOLAM [Concomitant]
     Active Substance: ALPRAZOLAM
     Indication: Depression
     Dosage: 3 MG, QD
     Route: 048
  9. ALPRAZOLAM [Concomitant]
     Active Substance: ALPRAZOLAM
     Indication: Anxiety

REACTIONS (14)
  - COVID-19 [Unknown]
  - Lung disorder [Unknown]
  - Severe acute respiratory syndrome [Recovered/Resolved]
  - Metastases to bone [Unknown]
  - Spinal compression fracture [Unknown]
  - Atelectasis [Unknown]
  - Lung opacity [Unknown]
  - Pain [Unknown]
  - Mobility decreased [Unknown]
  - Aortic aneurysm [Unknown]
  - Lymphadenopathy [Unknown]
  - Goitre [Unknown]
  - Pulmonary mass [Unknown]
  - Pathological fracture [Unknown]

NARRATIVE: CASE EVENT DATE: 20210501
